FAERS Safety Report 24781346 (Version 2)
Quarter: 2025Q1

REPORT INFORMATION
  Report Type: Report from Study
  Country: CN (occurrence: CN)
  Receive Date: 20241227
  Receipt Date: 20250117
  Transmission Date: 20250409
  Serious: Yes (Other)
  Sender: GILEAD
  Company Number: CN-GILEAD-2024-0698093

PATIENT
  Age: 33 Year
  Sex: Female

DRUGS (3)
  1. SACITUZUMAB GOVITECAN-HZIY [Suspect]
     Active Substance: SACITUZUMAB GOVITECAN-HZIY
     Indication: Breast cancer
     Route: 065
     Dates: start: 20240515
  2. SACITUZUMAB GOVITECAN-HZIY [Suspect]
     Active Substance: SACITUZUMAB GOVITECAN-HZIY
     Dosage: 520 MG, Q2WK
     Route: 042
     Dates: start: 20241222
  3. SACITUZUMAB GOVITECAN-HZIY [Suspect]
     Active Substance: SACITUZUMAB GOVITECAN-HZIY
     Dosage: 520 MG, Q2WK
     Route: 041
     Dates: start: 20250107

REACTIONS (1)
  - Myelosuppression [Recovering/Resolving]
